FAERS Safety Report 13580052 (Version 1)
Quarter: 2017Q2

REPORT INFORMATION
  Report Type: Report from Study
  Country: NL (occurrence: NL)
  Receive Date: 20170525
  Receipt Date: 20170525
  Transmission Date: 20170830
  Serious: Yes (Hospitalization, Other)
  Sender: FDA-Public Use
  Company Number: NL-AMGEN-NLDSL2017033429

PATIENT
  Age: 50 Year
  Sex: Female

DRUGS (1)
  1. NEULASTA [Suspect]
     Active Substance: PEGFILGRASTIM
     Indication: NEUTROPENIA
     Dosage: 0.6 ML, Q3WK
     Route: 058

REACTIONS (7)
  - Pyrexia [Unknown]
  - Blood count abnormal [Unknown]
  - Ill-defined disorder [Not Recovered/Not Resolved]
  - Diarrhoea [Recovered/Resolved]
  - Cystitis [Unknown]
  - Myalgia [Recovered/Resolved]
  - Neutropenia [Recovered/Resolved]

NARRATIVE: CASE EVENT DATE: 20170217
